FAERS Safety Report 13148632 (Version 11)
Quarter: 2018Q2

REPORT INFORMATION
  Report Type: Spontaneous
  Country: US (occurrence: US)
  Receive Date: 20170125
  Receipt Date: 20180615
  Transmission Date: 20180711
  Serious: No
  Sender: FDA-Public Use
  Company Number: US-PFIZER INC-2017029722

PATIENT
  Age: 82 Year
  Sex: Female
  Weight: 61 kg

DRUGS (21)
  1. IBRANCE [Suspect]
     Active Substance: PALBOCICLIB
     Dosage: 100 MG, UNK
     Dates: start: 2017
  2. LETROZOLE. [Concomitant]
     Active Substance: LETROZOLE
     Indication: BREAST CANCER FEMALE
  3. WARFARIN [Concomitant]
     Active Substance: WARFARIN
     Indication: ANTICOAGULANT THERAPY
     Dosage: 2.5 MG, DAILY (DOSE VARIES)
     Dates: start: 2016
  4. CALCIUM [Concomitant]
     Active Substance: CALCIUM
     Indication: BONE DISORDER
     Dosage: 600 MG, 2X/DAY
     Route: 048
     Dates: start: 2017
  5. IBRANCE [Suspect]
     Active Substance: PALBOCICLIB
     Indication: ADRENAL GLAND CANCER
     Dosage: 125 MG, CYCLIC  (21 DAYS ON AND 7 DAYS OFF)
     Dates: start: 20170105, end: 201701
  6. PROLIA [Concomitant]
     Active Substance: DENOSUMAB
     Dosage: UNK
  7. VITAMIN B12 [Concomitant]
     Active Substance: CYANOCOBALAMIN
     Indication: ATRIAL FIBRILLATION
     Dosage: 1000 UG, 1X/DAY
     Route: 048
     Dates: start: 2017
  8. IBRANCE [Suspect]
     Active Substance: PALBOCICLIB
     Dosage: 100 MG, CYCLIC (ONCE DAILY)
     Route: 048
     Dates: start: 2017, end: 2017
  9. XGEVA [Concomitant]
     Active Substance: DENOSUMAB
     Dosage: UNK (SECOND SHOT)
     Dates: start: 20171025, end: 2017
  10. XGEVA [Concomitant]
     Active Substance: DENOSUMAB
     Indication: BONE DISORDER
     Dosage: UNK, MONTHLY (ONCE A MONTH, IN THE UPPER ARM)
     Dates: start: 20161228, end: 20171025
  11. LETROZOLE. [Concomitant]
     Active Substance: LETROZOLE
     Indication: ADRENAL GLAND CANCER
     Dosage: 2.5 MG, 1X/DAY
     Route: 048
     Dates: start: 201609
  12. FEMARA [Concomitant]
     Active Substance: LETROZOLE
     Indication: NEOPLASM MALIGNANT
     Dosage: 2.5 MG, 1X/DAY
     Route: 048
     Dates: start: 201609
  13. IBRANCE [Suspect]
     Active Substance: PALBOCICLIB
     Dosage: UNK
     Dates: start: 20180408
  14. WARFARIN [Concomitant]
     Active Substance: WARFARIN
     Indication: ATRIAL FIBRILLATION
     Dosage: 5 MG, 1X/DAY (ONCE A DAY IN THE EVENING)
  15. VITAMIN D3 [Concomitant]
     Active Substance: CHOLECALCIFEROL
     Indication: BONE DISORDER
     Dosage: 5000 IU, 1X/DAY
     Route: 048
     Dates: start: 2017
  16. MAGNESIUM [Concomitant]
     Active Substance: MAGNESIUM
     Indication: MUSCLE SPASMS
     Dosage: 500 MG, 1X/DAY
     Route: 048
  17. IBRANCE [Suspect]
     Active Substance: PALBOCICLIB
     Indication: BREAST CANCER STAGE IV
     Dosage: 125 MG, CYCLIC (21 DAYS ON AND 7 DAYS OFF)
     Route: 048
     Dates: start: 201609
  18. IBRANCE [Suspect]
     Active Substance: PALBOCICLIB
     Dosage: 100 MG, CYCLIC (FOR 21 DAYS AND STOPS IT FOR 7 DAYS)
     Dates: start: 20170112, end: 2017
  19. IBRANCE [Suspect]
     Active Substance: PALBOCICLIB
     Dosage: 100 MG, CYCLIC (1 CAPSULE BY MOUTH FOR 21 DAYS THEN OFF FOR 7)
     Route: 048
     Dates: end: 20180329
  20. IBRANCE [Suspect]
     Active Substance: PALBOCICLIB
     Dosage: 100 MG, CYCLIC(ONCE DAILY BY MOUTH FOR 21 DAYS AND THEN OFF 7 DAYS)
     Route: 048
     Dates: start: 2018
  21. VITAMIN C [Concomitant]
     Active Substance: ASCORBIC ACID
     Indication: ROUTINE HEALTH MAINTENANCE
     Dosage: 1 DF, 1X/DAY
     Route: 048
     Dates: start: 2017

REACTIONS (7)
  - Full blood count decreased [Recovering/Resolving]
  - Body height decreased [Unknown]
  - Gait disturbance [Recovered/Resolved]
  - Nasopharyngitis [Recovering/Resolving]
  - White blood cell count decreased [Unknown]
  - Bone disorder [Unknown]
  - Pain [Not Recovered/Not Resolved]

NARRATIVE: CASE EVENT DATE: 201612
